FAERS Safety Report 17465543 (Version 3)
Quarter: 2020Q1

REPORT INFORMATION
  Report Type: Report from Study
  Country: None (occurrence: NL)
  Receive Date: 20200227
  Receipt Date: 20200327
  Transmission Date: 20200409
  Serious: Yes (Hospitalization)
  Sender: FDA-Public Use
  Company Number: NL-ABBVIE-20K-114-3293298-00

PATIENT
  Age: 76 Year
  Sex: Male

DRUGS (23)
  1. MADOPAR [Concomitant]
     Active Substance: BENSERAZIDE HYDROCHLORIDE\LEVODOPA
     Route: 048
     Dates: start: 20190510, end: 2019
  2. MOVICOLON [Concomitant]
     Active Substance: POLYETHYLENE GLYCOL 3350\POTASSIUM CHLORIDE\SODIUM BICARBONATE\SODIUM CHLORIDE
     Indication: ABNORMAL FAECES
     Dosage: AS NEEDED 2 TIMES A DAY 1 UNIT
     Route: 048
     Dates: start: 20200228
  3. PARACETAMOL [Concomitant]
     Active Substance: ACETAMINOPHEN
     Indication: PRODUCT USED FOR UNKNOWN INDICATION
     Dosage: IF NEEDED 4 TIMES A DAY 1000 MG
     Route: 048
  4. FLORINEF ACETATE [Concomitant]
     Active Substance: FLUDROCORTISONE ACETATE
     Indication: BLOOD PRESSURE MEASUREMENT
     Route: 048
     Dates: start: 20181010, end: 20200220
  5. OXYCODON [Concomitant]
     Active Substance: OXYCODONE
     Dosage: RET
     Route: 048
     Dates: start: 20200228
  6. COLECALCIFEROL [Concomitant]
     Active Substance: CHOLECALCIFEROL
     Indication: PRODUCT USED FOR UNKNOWN INDICATION
     Dosage: 1 UNIT ONLY ON FRIDAY
     Route: 048
     Dates: start: 20200228
  7. MADOPAR [Concomitant]
     Active Substance: BENSERAZIDE HYDROCHLORIDE\LEVODOPA
     Indication: PARKINSON^S DISEASE
     Route: 048
     Dates: start: 20190531, end: 2019
  8. NEUPRO [Concomitant]
     Active Substance: ROTIGOTINE
     Indication: PARKINSON^S DISEASE
     Dosage: 6MG/24 HOURS
     Route: 062
     Dates: start: 20191112
  9. TRIMETHOPRIM. [Concomitant]
     Active Substance: TRIMETHOPRIM
     Indication: URINARY TRACT INFECTION
     Route: 048
     Dates: start: 20200110, end: 20200117
  10. MACROGOL [Concomitant]
     Active Substance: POLYETHYLENE GLYCOLS
     Indication: ABNORMAL FAECES
     Route: 048
     Dates: start: 20170818
  11. CLOZAPINE. [Concomitant]
     Active Substance: CLOZAPINE
     Indication: PARKINSON^S DISEASE
     Route: 048
     Dates: start: 20200117
  12. DALTEPARIN [Concomitant]
     Active Substance: DALTEPARIN
     Indication: PRODUCT USED FOR UNKNOWN INDICATION
     Dosage: 5000IU=0.2ML (25.000IU/ML)
     Route: 058
     Dates: start: 20200228, end: 20200228
  13. SILDENAFIL. [Concomitant]
     Active Substance: SILDENAFIL
     Indication: PRODUCT USED FOR UNKNOWN INDICATION
     Dosage: AS NEEDED ONCE TABLET DAILY
     Route: 048
     Dates: start: 20200130, end: 20200220
  14. MADOPAR DISPERSIBL [Concomitant]
     Active Substance: BENSERAZIDE HYDROCHLORIDE\LEVODOPA
     Indication: PARKINSON^S DISEASE
     Dates: start: 20200228
  15. FUSIDIC ACID [Concomitant]
     Active Substance: FUSIDIC ACID
     Indication: PRODUCT USED FOR UNKNOWN INDICATION
     Dosage: 20MG/G
     Route: 003
     Dates: start: 20200306
  16. DUODOPA [Suspect]
     Active Substance: CARBIDOPA\LEVODOPA
     Indication: PARKINSON^S DISEASE
     Dosage: MD: 14.5, CD: 4.0, ED: 4.5
     Route: 050
     Dates: start: 20200127, end: 2020
  17. CETOMACROGOL [Concomitant]
     Active Substance: COSMETICS
     Indication: PRODUCT USED FOR UNKNOWN INDICATION
     Route: 003
     Dates: start: 20200228
  18. DUODOPA [Suspect]
     Active Substance: CARBIDOPA\LEVODOPA
     Dosage: MD: 14.5, CD: 4.1, ED: 4.5
     Route: 050
     Dates: start: 2020
  19. ENTACAPONE. [Concomitant]
     Active Substance: ENTACAPONE
     Indication: PARKINSON^S DISEASE
     Route: 048
     Dates: start: 20180202
  20. MADOPAR [Concomitant]
     Active Substance: BENSERAZIDE HYDROCHLORIDE\LEVODOPA
     Route: 048
     Dates: start: 20191022
  21. OXYCODON [Concomitant]
     Active Substance: OXYCODONE
     Indication: PRODUCT USED FOR UNKNOWN INDICATION
     Dosage: TWICE A DAY?IF NEED 6 TIMES A DAY ONE TABLET
     Route: 048
     Dates: start: 20200228
  22. PANTOPRAZOLE MSR [Concomitant]
     Indication: PRODUCT USED FOR UNKNOWN INDICATION
     Route: 048
     Dates: start: 20200228
  23. CLONAZEPAM. [Concomitant]
     Active Substance: CLONAZEPAM
     Indication: PRODUCT USED FOR UNKNOWN INDICATION
     Route: 048
     Dates: start: 20200228

REACTIONS (15)
  - Muscle strain [Unknown]
  - Dry mouth [Unknown]
  - Tremor [Unknown]
  - Post procedural complication [Recovering/Resolving]
  - Muscle rigidity [Unknown]
  - Unevaluable event [Not Recovered/Not Resolved]
  - Dyskinesia [Unknown]
  - Ageusia [Unknown]
  - Gastrointestinal disorder [Recovering/Resolving]
  - Hypotension [Unknown]
  - Medication error [Unknown]
  - Malaise [Unknown]
  - Abnormal faeces [Recovering/Resolving]
  - Memory impairment [Unknown]
  - On and off phenomenon [Unknown]

NARRATIVE: CASE EVENT DATE: 2020
